FAERS Safety Report 7022104-X (Version None)
Quarter: 2010Q3

REPORT INFORMATION
  Report Type: 
  Country: None (occurrence: None)
  Receive Date: 20100930
  Receipt Date: 20100917
  Transmission Date: 20110219
  Serious: Yes (Hospitalization)
  Sender: FDA-Public Use
  Company Number: US-BRISTOL-MYERS SQUIBB COMPANY-15293327

PATIENT
  Sex: Male

DRUGS (1)
  1. ONGLYZA [Suspect]
     Dosage: RECEIVED 5MG SAMPLES

REACTIONS (1)
  - PANCREATITIS ACUTE [None]
